FAERS Safety Report 8273337-6 (Version None)
Quarter: 2012Q2

REPORT INFORMATION
  Report Type: 
  Country: None (occurrence: None)
  Receive Date: 20120411
  Receipt Date: 20120406
  Transmission Date: 20120825
  Serious: Yes (Death)
  Sender: FDA-Public Use
  Company Number: PHHO2012CN005586

PATIENT
  Sex: Female
  Weight: 68.4 kg

DRUGS (2)
  1. ALISKIREN [Suspect]
     Indication: CARDIOVASCULAR DISORDER
     Dosage: 300 MG, UNK
     Route: 048
     Dates: start: 20100624, end: 20111226
  2. NOVOLIN R [Concomitant]
     Indication: DIABETES MELLITUS
     Dosage: 10 U TID

REACTIONS (1)
  - DEATH [None]
